FAERS Safety Report 17153988 (Version 2)
Quarter: 2019Q4

REPORT INFORMATION
  Report Type: Report from Study
  Country: JP (occurrence: JP)
  Receive Date: 20191213
  Receipt Date: 20191226
  Transmission Date: 20200122
  Serious: Yes (Hospitalization)
  Sender: FDA-Public Use
  Company Number: JP-CELLTRION INC.-2019JP021820

PATIENT

DRUGS (23)
  1. TRASTUZUMAB BS FOR I.V. INFUSION [NK] [Suspect]
     Active Substance: TRASTUZUMAB
     Indication: HER-2 POSITIVE GASTRIC CANCER
     Dosage: 8 MILLIGRAM/KILOGRAM (420 MILLIGRAM, QD)
     Route: 041
     Dates: start: 20190530, end: 20190530
  2. TRASTUZUMAB BS FOR I.V. INFUSION [NK] [Suspect]
     Active Substance: TRASTUZUMAB
     Dosage: 320 MILLIGRAM, QD
     Route: 041
     Dates: start: 20190621, end: 20190621
  3. PACLITAXEL. [Suspect]
     Active Substance: PACLITAXEL
     Indication: HER-2 POSITIVE GASTRIC CANCER
     Dosage: 100 MILLIGRAM, QD
     Route: 041
     Dates: start: 20190530, end: 20190530
  4. DILTIAZEM HYDROCHLORIDE. [Concomitant]
     Active Substance: DILTIAZEM HYDROCHLORIDE
     Indication: PRINZMETAL ANGINA
     Dosage: UNK
  5. PRAVASTATIN SODIUM. [Concomitant]
     Active Substance: PRAVASTATIN SODIUM
     Indication: DYSLIPIDAEMIA
     Dosage: UNK
  6. LECICARBON [POTASSIUM TARTRATE;SODIUM BICARBONATE] [Concomitant]
     Indication: CONSTIPATION
     Dosage: UNK
     Dates: start: 20190530, end: 20190530
  7. DEXTROMETHORPHAN HYDROBROMIDE HYDRATE [Concomitant]
     Active Substance: DEXTROMETHORPHAN HYDROBROMIDE
     Indication: PHARYNGITIS
     Dosage: UNK
     Dates: start: 20190601, end: 20190605
  8. NESINA [Concomitant]
     Active Substance: ALOGLIPTIN BENZOATE
     Indication: DIABETES MELLITUS
     Dosage: UNK
  9. SP [Concomitant]
     Indication: PHARYNGITIS
     Dosage: UNK
     Dates: start: 20190530, end: 20190605
  10. SENEGA [POLYGALA SENEGA] [Concomitant]
     Indication: PHARYNGITIS
     Dosage: UNK
     Dates: start: 20190603, end: 20190609
  11. APRICOT KERNEL WATER [Concomitant]
     Active Substance: HERBALS
     Indication: PHARYNGITIS
     Dosage: UNK
     Dates: start: 20190603, end: 20190609
  12. PACLITAXEL. [Suspect]
     Active Substance: PACLITAXEL
     Dosage: 100 MILLIGRAM, QD
     Route: 041
     Dates: start: 20190628, end: 20190628
  13. CAPECITABINE. [Suspect]
     Active Substance: CAPECITABINE
     Indication: PRODUCT USED FOR UNKNOWN INDICATION
     Dosage: UNK
     Route: 065
  14. RANITIDINE. [Concomitant]
     Active Substance: RANITIDINE
     Indication: ALLERGY PROPHYLAXIS
     Dosage: UNK
     Dates: start: 20190530, end: 20190705
  15. POLARAMINE [Concomitant]
     Active Substance: DEXCHLORPHENIRAMINE MALEATE
     Indication: ALLERGY PROPHYLAXIS
     Dosage: UNK
     Dates: start: 20190530, end: 20190705
  16. SENNOSIDE [Concomitant]
     Active Substance: SENNOSIDES
     Indication: CONSTIPATION
     Dosage: UNK
  17. CISPLATIN. [Suspect]
     Active Substance: CISPLATIN
     Indication: PRODUCT USED FOR UNKNOWN INDICATION
     Dosage: UNK
     Route: 065
  18. CODEINE PHOSPHATE HYDRATE [Concomitant]
     Active Substance: CODEINE PHOSPHATE
     Indication: PHARYNGITIS
     Dosage: UNK
     Dates: start: 20190603, end: 20190609
  19. TRASTUZUMAB BS FOR I.V. INFUSION [NK] [Suspect]
     Active Substance: TRASTUZUMAB
     Dosage: 320 MILLIGRAM, QD
     Route: 041
     Dates: start: 20190712, end: 20190712
  20. DEXART [Concomitant]
     Active Substance: DEXAMETHASONE SODIUM PHOSPHATE
     Indication: PROPHYLAXIS OF NAUSEA AND VOMITING
     Dosage: UNK
     Dates: start: 20190530, end: 20190705
  21. MAGNESIUM OXIDE. [Concomitant]
     Active Substance: MAGNESIUM OXIDE
     Indication: CONSTIPATION
     Dosage: UNK
  22. TAKECAB [Concomitant]
     Active Substance: VONOPRAZAN FUMURATE
     Indication: GASTROOESOPHAGEAL REFLUX DISEASE
     Dosage: UNK
  23. SALIPARA [Concomitant]
     Indication: PHARYNGITIS
     Dosage: UNK
     Dates: start: 20190603, end: 20190609

REACTIONS (8)
  - Nausea [Recovered/Resolved]
  - Platelet count decreased [Recovered/Resolved]
  - Neuropathy peripheral [Not Recovered/Not Resolved]
  - Interstitial lung disease [Recovering/Resolving]
  - Infusion related reaction [Recovered/Resolved]
  - Neutrophil count decreased [Recovered/Resolved]
  - Decreased appetite [Recovering/Resolving]
  - Underdose [Unknown]

NARRATIVE: CASE EVENT DATE: 20190530
